FAERS Safety Report 5033857-4 (Version None)
Quarter: 2006Q2

REPORT INFORMATION
  Report Type: 
  Country: None (occurrence: None)
  Receive Date: 20060623
  Receipt Date: 20060612
  Transmission Date: 20061013
  Serious: Yes (Hospitalization)
  Sender: FDA-Public Use
  Company Number: FR-AMGEN-UK182514

PATIENT
  Sex: Female

DRUGS (1)
  1. KINERET [Suspect]
     Indication: PRE-EXISTING DISEASE
     Route: 065

REACTIONS (1)
  - ECZEMA [None]
